FAERS Safety Report 20834217 (Version 1)
Quarter: 2022Q2

REPORT INFORMATION
  Report Type: Spontaneous
  Country: US (occurrence: None)
  Receive Date: 20220514
  Receipt Date: 20220514
  Transmission Date: 20220720
  Serious: Yes (Other)
  Sender: FDA-Public Use
  Company Number: None

PATIENT
  Age: 54 Year
  Sex: Female
  Weight: 90 kg

DRUGS (1)
  1. PERMETHRIN [Suspect]
     Active Substance: PERMETHRIN
     Indication: Acarodermatitis
     Dosage: OTHER FREQUENCY : ONE TUBE A WEEK;?
     Route: 061
     Dates: start: 20220309, end: 20220512

REACTIONS (4)
  - Rash [None]
  - Condition aggravated [None]
  - Drug ineffective [None]
  - Acarodermatitis [None]

NARRATIVE: CASE EVENT DATE: 20220503
